FAERS Safety Report 5741213-6 (Version None)
Quarter: 2008Q2

REPORT INFORMATION
  Report Type: 
  Country: None (occurrence: None)
  Receive Date: 20080516
  Receipt Date: 20080509
  Transmission Date: 20081010
  Serious: Yes (Other)
  Sender: FDA-Public Use
  Company Number: US-PFIZER INC-2008041222

PATIENT
  Sex: Female
  Weight: 96.2 kg

DRUGS (9)
  1. CHANTIX [Suspect]
     Indication: SMOKING CESSATION THERAPY
  2. CHANTIX [Suspect]
  3. LITHIUM CARBONATE [Concomitant]
  4. XANAX [Concomitant]
  5. RESTORIL [Concomitant]
  6. CELEXA [Concomitant]
  7. METHADONE HCL [Concomitant]
  8. LACTULOSE [Concomitant]
  9. ALBUTEROL [Concomitant]

REACTIONS (1)
  - VIOLENCE-RELATED SYMPTOM [None]
